FAERS Safety Report 24918476 (Version 3)
Quarter: 2025Q2

REPORT INFORMATION
  Report Type: Spontaneous
  Country: US (occurrence: US)
  Receive Date: 20250203
  Receipt Date: 20250423
  Transmission Date: 20250716
  Serious: No
  Sender: SANDOZ
  Company Number: US-002147023-PHHY2011US04354

PATIENT
  Age: 77 Year
  Sex: Female

DRUGS (1)
  1. RECLAST [Suspect]
     Active Substance: ZOLEDRONIC ACID
     Indication: Product used for unknown indication
     Route: 042
     Dates: start: 20101207

REACTIONS (12)
  - Depression [Unknown]
  - Gastrointestinal disorder [Unknown]
  - Vision blurred [Unknown]
  - Eye pain [Unknown]
  - Nasopharyngitis [Unknown]
  - Joint swelling [Unknown]
  - Pain [Unknown]
  - Muscle spasms [Unknown]
  - Bone pain [Unknown]
  - Peripheral swelling [Unknown]
  - Pain in extremity [Unknown]
  - Arthralgia [Unknown]

NARRATIVE: CASE EVENT DATE: 20101208
